FAERS Safety Report 5076391-8 (Version None)
Quarter: 2006Q3

REPORT INFORMATION
  Report Type: 
  Country: None (occurrence: None)
  Receive Date: 20060807
  Receipt Date: 20060726
  Transmission Date: 20061208
  Serious: Yes (Other)
  Sender: FDA-Public Use
  Company Number: 2006086851

PATIENT
  Sex: 0

DRUGS (2)
  1. XANAX [Suspect]
     Indication: INSOMNIA
     Dosage: 0.25 MG , ORAL
     Route: 048
  2. TRIAZOLAM [Suspect]
     Indication: INSOMNIA
     Dosage: 0.5 MG, ORAL
     Route: 048

REACTIONS (2)
  - AMNESIA [None]
  - DRUG INTERACTION [None]
